FAERS Safety Report 8910133 (Version 1)
Quarter: 2012Q4

REPORT INFORMATION
  Report Type: 
  Country: FR (occurrence: FR)
  Receive Date: 20121115
  Receipt Date: 20121115
  Transmission Date: 20130627
  Serious: Yes (Death, Hospitalization)
  Sender: FDA-Public Use
  Company Number: FR-BRISTOL-MYERS SQUIBB COMPANY-17103870

PATIENT
  Age: 88 Year
  Sex: Female

DRUGS (9)
  1. COUMADINE [Suspect]
     Indication: CARDIAC FAILURE
     Dosage: unk-14Jun2012
     Route: 048
     Dates: end: 20120614
  2. ADANCOR [Concomitant]
  3. LASILIX [Concomitant]
  4. ALDACTONE [Concomitant]
  5. NITRIDERM [Concomitant]
  6. SPASFON [Concomitant]
  7. TRANXENE [Concomitant]
  8. ZYLORIC [Concomitant]
  9. FURADANTINE [Concomitant]

REACTIONS (7)
  - Cardiac failure [Fatal]
  - Renal failure acute [Fatal]
  - Oedema peripheral [Unknown]
  - Pulmonary oedema [Unknown]
  - Dysfunctional uterine bleeding [Unknown]
  - Endometrial neoplasm [Unknown]
  - International normalised ratio increased [Unknown]
